FAERS Safety Report 6478935-8 (Version None)
Quarter: 2009Q4

REPORT INFORMATION
  Report Type: 
  Country: None (occurrence: None)
  Receive Date: 20091207
  Receipt Date: 20090205
  Transmission Date: 20100525
  Serious: No
  Sender: FDA-Public Use
  Company Number: US-AMGEN-KDL332426

PATIENT
  Sex: Female

DRUGS (2)
  1. ENBREL [Suspect]
     Indication: RHEUMATOID ARTHRITIS
     Route: 058
     Dates: start: 20090116
  2. METHOTREXATE [Concomitant]
     Dates: start: 20090129

REACTIONS (6)
  - ERYTHEMA [None]
  - MUSCLE SPASMS [None]
  - OCULAR HYPERAEMIA [None]
  - OCULAR ICTERUS [None]
  - PARAESTHESIA [None]
  - VISION BLURRED [None]
